FAERS Safety Report 4953507-2 (Version None)
Quarter: 2006Q1

REPORT INFORMATION
  Report Type: 
  Country: None (occurrence: None)
  Receive Date: 20060324
  Receipt Date: 20060301
  Transmission Date: 20060701
  Serious: Yes (Other)
  Sender: FDA-Public Use
  Company Number: JP-ROCHE-439003

PATIENT
  Age: 5 Year
  Sex: Male
  Weight: 18 kg

DRUGS (9)
  1. TAMIFLU [Suspect]
     Route: 048
     Dates: start: 20060207, end: 20060207
  2. TAMIFLU [Suspect]
     Route: 048
     Dates: start: 20060208, end: 20060209
  3. TAMIFLU [Suspect]
     Route: 048
     Dates: start: 20060210, end: 20060210
  4. TAMIFLU [Suspect]
     Route: 048
     Dates: start: 20060211, end: 20060211
  5. PERIACTIN [Concomitant]
     Route: 048
     Dates: start: 20060207, end: 20060214
  6. MUCODYNE [Concomitant]
     Route: 048
     Dates: start: 20060207, end: 20060214
  7. BRICANYL [Concomitant]
     Route: 048
     Dates: start: 20060207, end: 20060214
  8. LIGHTGEN T [Concomitant]
     Route: 048
     Dates: start: 20060207, end: 20060214
  9. ALIMEZINE [Concomitant]
     Route: 048
     Dates: start: 20060207, end: 20060214

REACTIONS (1)
  - HYPOTHERMIA [None]
